FAERS Safety Report 6936958-6 (Version None)
Quarter: 2010Q3

REPORT INFORMATION
  Report Type: 
  Country: None (occurrence: None)
  Receive Date: 20100823
  Receipt Date: 20091016
  Transmission Date: 20110219
  Serious: No
  Sender: FDA-Public Use
  Company Number: US-BRISTOL-MYERS SQUIBB COMPANY-14820658

PATIENT
  Age: 92 Year
  Sex: Female

DRUGS (1)
  1. MAXIPIME [Suspect]
     Route: 041

REACTIONS (1)
  - NAUSEA [None]
